FAERS Safety Report 10235237 (Version 1)
Quarter: 2014Q2

REPORT INFORMATION
  Report Type: Spontaneous
  Country: US (occurrence: US)
  Receive Date: 20140613
  Receipt Date: 20140613
  Transmission Date: 20141212
  Serious: Yes (Life-Threatening, Hospitalization)
  Sender: FDA-Public Use
  Company Number: US-GLENMARK PHARMACEUTICALS EUROPE LIMITED-2014GMK009757

PATIENT
  Age: 19 Year
  Sex: Male

DRUGS (2)
  1. CITALOPRAM HYDROBROMIDE [Suspect]
     Indication: DEPRESSION
     Dosage: UNK
  2. METHADONE [Suspect]
     Indication: PRODUCT USED FOR UNKNOWN INDICATION
     Dosage: UNK

REACTIONS (12)
  - Altered state of consciousness [Recovering/Resolving]
  - Toxicity to various agents [Recovering/Resolving]
  - Cardiomyopathy [Recovering/Resolving]
  - Unresponsive to stimuli [Recovering/Resolving]
  - Clonus [Recovering/Resolving]
  - Hypothermia [Recovered/Resolved]
  - Cardiogenic shock [Recovering/Resolving]
  - Respiratory acidosis [Recovering/Resolving]
  - Hyperreflexia [Recovering/Resolving]
  - Hyperlactacidaemia [Unknown]
  - Atrial fibrillation [Recovering/Resolving]
  - Hypotension [Recovering/Resolving]
